FAERS Safety Report 16783035 (Version 1)
Quarter: 2019Q3

REPORT INFORMATION
  Report Type: Spontaneous
  Country: US (occurrence: US)
  Receive Date: 20190906
  Receipt Date: 20190906
  Transmission Date: 20191005
  Serious: Yes (Other)
  Sender: FDA-Public Use
  Company Number: PHHY2019US206746

PATIENT
  Age: 32 Year
  Sex: Female

DRUGS (1)
  1. OXACILLIN [Suspect]
     Active Substance: OXACILLIN SODIUM
     Indication: STAPHYLOCOCCAL INFECTION
     Dosage: UNK (SIX WEEKS COURSE)
     Route: 042

REACTIONS (1)
  - Hypersensitivity vasculitis [Unknown]
